FAERS Safety Report 14186390 (Version 1)
Quarter: 2017Q4

REPORT INFORMATION
  Report Type: Spontaneous
  Country: GB (occurrence: GB)
  Receive Date: 20171114
  Receipt Date: 20171114
  Transmission Date: 20180321
  Serious: Yes (Other)
  Sender: FDA-Public Use
  Company Number: GB-CONCORDIA PHARMACEUTICALS INC.-GSH201605-002689

PATIENT
  Age: 85 Year
  Sex: Female

DRUGS (15)
  1. LOSARTAN POTASSIUM. [Concomitant]
     Active Substance: LOSARTAN POTASSIUM
     Dosage: EVERY MORNING
     Route: 048
  2. LANSOPRAZOLE. [Concomitant]
     Active Substance: LANSOPRAZOLE
     Dosage: EVERY MORNING - TO BE CONTINUED BY GP
     Route: 048
  3. PREDNISOLONE. [Suspect]
     Active Substance: PREDNISOLONE
     Dosage: EVERY MORNING
     Route: 048
     Dates: end: 20160416
  4. CO-AMOXICLAV [Concomitant]
     Active Substance: AMOXICILLIN\CLAVULANIC ACID
     Dosage: 8AM, 2PM AND 10PM, ORAL STEP DOWN FROM TAZOCIN - NOT TO BE CONTINUED BY GP
     Route: 048
     Dates: end: 20160417
  5. PREDNISOLONE. [Suspect]
     Active Substance: PREDNISOLONE
     Dosage: EVERY MORNING
     Route: 048
     Dates: start: 20160427, end: 20160502
  6. SALBUTAMOL [Concomitant]
     Active Substance: ALBUTEROL
     Dosage: TO BE CONTINUED BY GP
  7. CARBOCISTEINE [Suspect]
     Active Substance: CARBOCYSTEINE
     Indication: CHRONIC OBSTRUCTIVE PULMONARY DISEASE
     Dosage: 8AM,12PM AND 4PM
     Route: 048
     Dates: end: 20160512
  8. UNIPHYLLIN CONTINUS [Concomitant]
     Active Substance: THEOPHYLLINE ANHYDROUS
     Dosage: 8AM AND 6PM
     Route: 048
  9. PREDNISOLONE. [Suspect]
     Active Substance: PREDNISOLONE
     Dosage: EVERY MORNING
     Route: 048
     Dates: start: 20160502, end: 20160507
  10. PREDNISOLONE. [Suspect]
     Active Substance: PREDNISOLONE
     Dosage: EVERY MORNING
     Route: 048
     Dates: start: 20160422, end: 20160427
  11. SALBUTAMOL [Concomitant]
     Active Substance: ALBUTEROL
     Indication: DYSPNOEA
     Dosage: 5 MG/2.5 ML - NOT TO BE CONTINUED BY GP
     Route: 055
  12. IPRATROPIUM BROMIDE. [Concomitant]
     Active Substance: IPRATROPIUM BROMIDE
     Dosage: 500 MICROGRAM/2ML - NOT TO BE CONTINUED BY GP
     Route: 055
  13. PREDNISOLONE. [Suspect]
     Active Substance: PREDNISOLONE
     Dosage: EVERY MORNING
     Route: 048
     Dates: start: 20160507, end: 20160512
  14. PREDNISOLONE. [Suspect]
     Active Substance: PREDNISOLONE
     Dosage: EVERY MORNING
     Route: 048
     Dates: start: 20160417, end: 20160422
  15. SERETIDE [Concomitant]
     Active Substance: FLUTICASONE PROPIONATE\SALMETEROL XINAFOATE
     Dosage: 8AM AND 6PM - TO BE CONTINUED BY GP
     Route: 055

REACTIONS (1)
  - Chronic gastritis [Recovering/Resolving]
